FAERS Safety Report 13162938 (Version 1)
Quarter: 2017Q1

REPORT INFORMATION
  Report Type: Spontaneous
  Country: US (occurrence: US)
  Receive Date: 20170130
  Receipt Date: 20170130
  Transmission Date: 20170428
  Serious: No
  Sender: FDA-Public Use
  Company Number: US-HORIZON-RAV-0027-2017

PATIENT
  Age: 31 Year
  Sex: Male

DRUGS (4)
  1. PRO-PHREE [Concomitant]
  2. MULTIVITAMIN WITH IRON [Concomitant]
     Active Substance: IRON\VITAMINS
     Dosage: DAILY
  3. RAVICTI [Suspect]
     Active Substance: GLYCEROL PHENYLBUTYRATE
     Indication: ORNITHINE TRANSCARBAMOYLASE DEFICIENCY
     Dosage: 5.8 ML TID
  4. CYCLINEX [Concomitant]

REACTIONS (2)
  - Nasopharyngitis [Recovering/Resolving]
  - Vomiting [Recovered/Resolved]
